FAERS Safety Report 5256092-3 (Version None)
Quarter: 2007Q1

REPORT INFORMATION
  Report Type: 
  Country: None (occurrence: None)
  Receive Date: 20070306
  Receipt Date: 20070227
  Transmission Date: 20070707
  Serious: Yes (Hospitalization)
  Sender: FDA-Public Use
  Company Number: US-JNJFOC-20070300043

PATIENT
  Age: 45 Year
  Sex: Male

DRUGS (2)
  1. FENTANYL [Suspect]
     Indication: ANAESTHESIA
     Route: 065
  2. ANTIDEPRESSANTS [Suspect]
     Indication: DEPRESSION
     Route: 065

REACTIONS (1)
  - SEROTONIN SYNDROME [None]
